FAERS Safety Report 9181797 (Version 2)
Quarter: 2013Q1

REPORT INFORMATION
  Report Type: Spontaneous
  Country: GB (occurrence: GB)
  Receive Date: 20130322
  Receipt Date: 20130328
  Transmission Date: 20140127
  Serious: Yes (Hospitalization, Other)
  Sender: FDA-Public Use
  Company Number: GB-ABBOTT-13P-167-1064919-00

PATIENT
  Sex: Male

DRUGS (2)
  1. HUMIRA [Suspect]
     Indication: PSORIASIS
     Route: 058
     Dates: start: 200910, end: 201212
  2. SALBUTAMOL [Concomitant]
     Indication: ASTHMA
     Dosage: 2 AD
     Route: 055

REACTIONS (1)
  - Glioma [Not Recovered/Not Resolved]
